FAERS Safety Report 9648472 (Version 1)
Quarter: 2013Q4

REPORT INFORMATION
  Report Type: Spontaneous
  Country: US (occurrence: US)
  Receive Date: 20131028
  Receipt Date: 20131028
  Transmission Date: 20140711
  Serious: Yes (Other)
  Sender: FDA-Public Use
  Company Number: US-JNJFOC-20131012570

PATIENT
  Age: 67 Year
  Sex: Female
  Weight: 117.94 kg

DRUGS (3)
  1. XARELTO [Suspect]
     Indication: THROMBOSIS
     Dosage: FOR 21 DAYS
     Route: 048
  2. XARELTO [Suspect]
     Indication: THROMBOSIS
     Route: 048
     Dates: start: 201307
  3. CARDIZEM [Concomitant]
     Indication: HYPERTENSION
     Route: 048
     Dates: end: 201310

REACTIONS (2)
  - Weight decreased [Not Recovered/Not Resolved]
  - Headache [Not Recovered/Not Resolved]
